FAERS Safety Report 6184796-7 (Version None)
Quarter: 2009Q2

REPORT INFORMATION
  Report Type: 
  Country: None (occurrence: None)
  Receive Date: 20090508
  Receipt Date: 20090505
  Transmission Date: 20091009
  Serious: Yes (Other)
  Sender: FDA-Public Use
  Company Number: EC-ALLERGAN-0906279US

PATIENT
  Sex: Female
  Weight: 47 kg

DRUGS (1)
  1. EPINASTINE HCL 20 MG TAB [Suspect]
     Indication: URTICARIA
     Dosage: 20 MG, QD
     Route: 048
     Dates: start: 20090117, end: 20090121

REACTIONS (1)
  - ANGIOEDEMA [None]
